FAERS Safety Report 13904474 (Version 1)
Quarter: 2017Q3

REPORT INFORMATION
  Report Type: Spontaneous
  Country: US (occurrence: None)
  Receive Date: 20170819
  Receipt Date: 20170819
  Transmission Date: 20171127
  Serious: No
  Sender: FDA-Public Use
  Company Number: None

PATIENT
  Age: 74 Year
  Sex: Female

DRUGS (1)
  1. PROLIA [Suspect]
     Active Substance: DENOSUMAB
     Dosage: 60MG Q6 MONTHS SQ
     Route: 058
     Dates: start: 20170201

REACTIONS (6)
  - Hypersensitivity [None]
  - Chest discomfort [None]
  - Malaise [None]
  - Swollen tongue [None]
  - Muscle tightness [None]
  - Dyspnoea [None]

NARRATIVE: CASE EVENT DATE: 20170818
